FAERS Safety Report 4428006-7 (Version None)
Quarter: 2004Q3

REPORT INFORMATION
  Report Type: 
  Country: None (occurrence: None)
  Receive Date: 20040726
  Receipt Date: 20040314
  Transmission Date: 20050211
  Serious: No
  Sender: FDA-Public Use
  Company Number: USA030741409

PATIENT
  Age: 67 Year
  Sex: Female
  Weight: 63 kg

DRUGS (2)
  1. FORTEO [Suspect]
     Indication: OSTEOPOROSIS
     Dosage: 20 UG/1 DAY
     Dates: start: 20030201
  2. DILAUDID [Concomitant]

REACTIONS (11)
  - ASTHENIA [None]
  - BONE DENSITY DECREASED [None]
  - BONE PAIN [None]
  - DYSPNOEA [None]
  - DYSSTASIA [None]
  - HYPOAESTHESIA [None]
  - INJECTION SITE BURNING [None]
  - INJECTION SITE HAEMORRHAGE [None]
  - MOBILITY DECREASED [None]
  - PAIN [None]
  - SENSORY DISTURBANCE [None]
